FAERS Safety Report 7170006-0 (Version None)
Quarter: 2010Q4

REPORT INFORMATION
  Report Type: 
  Country: None (occurrence: None)
  Receive Date: 20101217
  Receipt Date: 20101206
  Transmission Date: 20110411
  Serious: Yes (Hospitalization)
  Sender: FDA-Public Use
  Company Number: FR-TEVA-251335ISR

PATIENT
  Sex: Female

DRUGS (3)
  1. COPAXONE [Suspect]
     Indication: MULTIPLE SCLEROSIS
     Route: 058
     Dates: start: 20080101, end: 20090101
  2. COPAXONE [Suspect]
     Dates: end: 20100801
  3. VENLAFAXINE HCL [Concomitant]
     Indication: DEPRESSION

REACTIONS (8)
  - ACUTE RESPIRATORY DISTRESS SYNDROME [None]
  - ALCOHOL ABUSE [None]
  - DEPRESSION [None]
  - HYPOXIA [None]
  - IMMUNOSUPPRESSION [None]
  - INFLUENZA LIKE ILLNESS [None]
  - LUNG DISORDER [None]
  - PNEUMONIA [None]
